FAERS Safety Report 5399269-9 (Version None)
Quarter: 2007Q3

REPORT INFORMATION
  Report Type: 
  Country: None (occurrence: None)
  Receive Date: 20070727
  Receipt Date: 20070720
  Transmission Date: 20080115
  Serious: Yes (Hospitalization)
  Sender: FDA-Public Use
  Company Number: B0478286A

PATIENT
  Age: 64 Year
  Sex: Female
  Weight: 57 kg

DRUGS (11)
  1. ZANTAC 150 [Suspect]
     Indication: GASTRIC ULCER HAEMORRHAGE
     Dosage: 150MG PER DAY
     Route: 042
     Dates: start: 20070613, end: 20070628
  2. MAXIPIME [Suspect]
     Indication: SEPSIS
     Dosage: 1G TWICE PER DAY
     Route: 042
     Dates: start: 20070615, end: 20070618
  3. PRODIF [Suspect]
     Indication: SEPSIS
     Dosage: 400MG PER DAY
     Route: 042
     Dates: start: 20070613, end: 20070618
  4. VANCOMYCIN [Suspect]
     Indication: SEPSIS
     Route: 042
     Dates: start: 20070613, end: 20070614
  5. OMEPRAZOLE [Concomitant]
     Indication: GASTRIC ULCER HAEMORRHAGE
     Dosage: 20MG PER DAY
     Route: 042
     Dates: start: 20070522, end: 20070626
  6. CIPROFLOXACIN [Concomitant]
     Indication: SEPSIS
     Dosage: 600MG PER DAY
     Route: 042
     Dates: start: 20070612, end: 20070615
  7. PREDONINE [Concomitant]
     Route: 042
     Dates: start: 20070620, end: 20070625
  8. TAGAMET [Concomitant]
     Indication: DUODENAL ULCER
     Route: 048
     Dates: start: 20070629, end: 20070702
  9. HYDROCORTONE [Concomitant]
     Route: 042
     Dates: start: 20070613, end: 20070627
  10. PREDONINE [Concomitant]
     Dosage: 15MG PER DAY
     Route: 048
     Dates: start: 20070628
  11. GRAN [Concomitant]
     Route: 058
     Dates: start: 20070613

REACTIONS (4)
  - AGRANULOCYTOSIS [None]
  - C-REACTIVE PROTEIN INCREASED [None]
  - PANCYTOPENIA [None]
  - SMALL INTESTINE CARCINOMA [None]
